FAERS Safety Report 19634911 (Version 1)
Quarter: 2021Q3

REPORT INFORMATION
  Report Type: Spontaneous
  Country: US (occurrence: US)
  Receive Date: 20210730
  Receipt Date: 20210730
  Transmission Date: 20211014
  Serious: No
  Sender: FDA-Public Use
  Company Number: US-EMD SERONO-9251690

PATIENT
  Age: 75 Year
  Sex: Female

DRUGS (1)
  1. REBIF [Suspect]
     Active Substance: INTERFERON BETA-1A
     Indication: MULTIPLE SCLEROSIS
     Dosage: REBIF PREFILLED SYRINGE
     Route: 058
     Dates: start: 20210122

REACTIONS (8)
  - Injection site necrosis [Unknown]
  - Injection site pain [Recovering/Resolving]
  - Injection site erythema [Recovering/Resolving]
  - Injection site induration [Recovering/Resolving]
  - Injection site injury [Recovering/Resolving]
  - Influenza like illness [Unknown]
  - Injection site scab [Unknown]
  - Drug intolerance [Unknown]

NARRATIVE: CASE EVENT DATE: 2021
